FAERS Safety Report 8910243 (Version 1)
Quarter: 2012Q4

REPORT INFORMATION
  Report Type: 
  Country: US (occurrence: US)
  Receive Date: 20121115
  Receipt Date: 20121115
  Transmission Date: 20130627
  Serious: No
  Sender: FDA-Public Use
  Company Number: US-BIOGENIDEC-2012BI050652

PATIENT
  Age: 45 Year
  Sex: Female

DRUGS (1)
  1. TYSABRI [Suspect]
     Indication: MULTIPLE SCLEROSIS
     Route: 042
     Dates: start: 20080207

REACTIONS (7)
  - Abdominal pain [Unknown]
  - Abdominal distension [Unknown]
  - Dysgeusia [Unknown]
  - Skin exfoliation [Unknown]
  - Constipation [Unknown]
  - Central nervous system lesion [Unknown]
  - Multiple sclerosis [Unknown]
